FAERS Safety Report 8294428-X (Version None)
Quarter: 2012Q2

REPORT INFORMATION
  Report Type: 
  Country: None (occurrence: None)
  Receive Date: 20120418
  Receipt Date: 20120409
  Transmission Date: 20120825
  Serious: Yes (Hospitalization, Other)
  Sender: FDA-Public Use
  Company Number: PHHY2012BR031224

PATIENT
  Sex: Female

DRUGS (11)
  1. CLONAZEPAM [Concomitant]
     Indication: DEPRESSION
     Dosage: 2.5 MG, QD
  2. CALCIUM SANDOZ [Concomitant]
  3. DIOVAN [Suspect]
     Dosage: 320 MG, DAILY (HALF TABLET AT MORNING AND HALF TABLET AT NIGHT)
     Dates: end: 20120314
  4. SIMVASTATIN [Concomitant]
     Indication: DEPRESSION
     Dosage: 10 MG, 2 TABLETS DAILY
  5. PROZEN [Concomitant]
     Indication: DEPRESSION
  6. ADDERA [Concomitant]
     Indication: VITAMIN D DEFICIENCY
  7. MENOPAX [Concomitant]
     Indication: MENOPAUSE
  8. PANTOPRAZOLE [Concomitant]
  9. DIOVAN [Suspect]
     Dosage: 40 MG, DAILY (1 TABLET AT MORNING AND 1 TABLET AT NIGHT)
     Dates: start: 20120314
  10. DIOVAN [Suspect]
     Indication: HYPERTENSION
     Dosage: 160 MG, DAILY (HALF TABLET AT MORNING AND HALF TABLET AT NIGHT)
     Dates: start: 20100101
  11. MOTILIUM [Concomitant]

REACTIONS (9)
  - MALAISE [None]
  - WRONG TECHNIQUE IN DRUG USAGE PROCESS [None]
  - VOMITING [None]
  - HEART RATE DECREASED [None]
  - LOSS OF CONSCIOUSNESS [None]
  - DYSSTASIA [None]
  - HEADACHE [None]
  - DIZZINESS [None]
  - BLOOD PRESSURE INCREASED [None]
